FAERS Safety Report 6622643-7 (Version None)
Quarter: 2010Q1

REPORT INFORMATION
  Report Type: 
  Country: None (occurrence: None)
  Receive Date: 20100310
  Receipt Date: 20100114
  Transmission Date: 20100710
  Serious: No
  Sender: FDA-Public Use
  Company Number: US-BIOGENIDEC-2010BI001811

PATIENT
  Sex: Female

DRUGS (2)
  1. AVONEX [Suspect]
     Indication: MULTIPLE SCLEROSIS
     Route: 030
     Dates: start: 20021120, end: 20080319
  2. AVONEX [Suspect]
     Route: 030
     Dates: end: 20090325

REACTIONS (4)
  - ARTHRALGIA [None]
  - HEADACHE [None]
  - PARAESTHESIA [None]
  - SKIN TIGHTNESS [None]
